FAERS Safety Report 8831574 (Version 1)
Quarter: 2012Q4

REPORT INFORMATION
  Report Type: 
  Country: US (occurrence: US)
  Receive Date: 20121009
  Receipt Date: 20121009
  Transmission Date: 20130627
  Serious: Yes (Hospitalization)
  Sender: FDA-Public Use
  Company Number: US-GLAXOSMITHKLINE-A0887126A

PATIENT
  Age: 66 Year
  Sex: Male
  Weight: 95.5 kg

DRUGS (1)
  1. AVANDIA [Suspect]
     Indication: DIABETES MELLITUS
     Dosage: 4MG Per day
     Route: 048
     Dates: start: 20000427, end: 20070523

REACTIONS (7)
  - Cerebrovascular accident [Not Recovered/Not Resolved]
  - Coronary artery bypass [Unknown]
  - Stent placement [Unknown]
  - Coronary artery disease [Unknown]
  - Renal failure [Unknown]
  - Chest pain [Unknown]
  - Dyspnoea [Unknown]
